FAERS Safety Report 12802587 (Version 2)
Quarter: 2016Q4

REPORT INFORMATION
  Report Type: Spontaneous
  Country: IT (occurrence: IT)
  Receive Date: 20161003
  Receipt Date: 20161017
  Transmission Date: 20170207
  Serious: Yes (Hospitalization, Other)
  Sender: FDA-Public Use
  Company Number: IT-PFIZER INC-2016458946

PATIENT
  Age: 82 Year
  Sex: Male

DRUGS (5)
  1. ACTONEL [Concomitant]
     Active Substance: RISEDRONATE SODIUM
     Indication: OSTEOPOROSIS
     Dosage: 1.0DF UNKNOWN
     Route: 048
  2. DIBASE [Concomitant]
     Active Substance: CHOLECALCIFEROL
     Indication: OSTEOPOROSIS
     Dosage: 25000 UI/2,5 ML, 1 DF
     Route: 048
  3. ATENOLOL. [Suspect]
     Active Substance: ATENOLOL
     Indication: HYPERTENSION
     Dosage: 100 MG, 1X/DAY
     Route: 048
     Dates: start: 20090901, end: 20160810
  4. PREVEX [Concomitant]
     Active Substance: FELODIPINE
     Indication: HYPERTENSION
     Dosage: 10.0MG UNKNOWN
     Route: 048
  5. CARDIOASPIR [Concomitant]
     Dosage: 100.0MG UNKNOWN
     Route: 048

REACTIONS (7)
  - Drop attacks [Recovered/Resolved]
  - Wound [Unknown]
  - Blood pressure increased [Unknown]
  - Bradycardia [Recovered/Resolved]
  - Fall [Unknown]
  - Drug ineffective [Unknown]
  - Syncope [Recovered/Resolved]

NARRATIVE: CASE EVENT DATE: 20160810
